FAERS Safety Report 10343427 (Version 2)
Quarter: 2014Q3

REPORT INFORMATION
  Report Type: Spontaneous
  Country: JP (occurrence: JP)
  Receive Date: 20140725
  Receipt Date: 20140725
  Transmission Date: 20150326
  Serious: Yes (Other)
  Sender: FDA-Public Use
  Company Number: JP-ABBVIE-14P-087-1254350-00

PATIENT
  Age: 38 Year
  Sex: Female
  Weight: 57 kg

DRUGS (6)
  1. PROPOFOL. [Suspect]
     Active Substance: PROPOFOL
     Indication: GENERAL ANAESTHESIA
     Route: 055
  2. REMIFENTANYL [Concomitant]
     Active Substance: REMIFENTANIL
  3. ESLAX [Concomitant]
     Active Substance: ROCURONIUM BROMIDE
     Indication: GENERAL ANAESTHESIA
  4. FORANE [Suspect]
     Active Substance: ISOFLURANE
  5. FORANE [Suspect]
     Active Substance: ISOFLURANE
     Indication: GENERAL ANAESTHESIA
  6. REMIFENTANYL [Concomitant]
     Active Substance: REMIFENTANIL
     Indication: GENERAL ANAESTHESIA

REACTIONS (2)
  - Procedural hypotension [Recovering/Resolving]
  - Pancreatitis acute [Recovering/Resolving]
